FAERS Safety Report 6260653-2 (Version None)
Quarter: 2009Q3

REPORT INFORMATION
  Report Type: 
  Country: None (occurrence: None)
  Receive Date: 20090706
  Receipt Date: 20090622
  Transmission Date: 20100115
  Serious: Yes (Other)
  Sender: FDA-Public Use
  Company Number: GXKR2009JP07361

PATIENT
  Age: 68 Year
  Sex: Female

DRUGS (1)
  1. AMLODIPINE [Suspect]
     Indication: HYPERTENSION
     Dosage: 5 MG/DAY, ORAL
     Route: 048
     Dates: start: 20081101, end: 20090612

REACTIONS (4)
  - ARRHYTHMIA [None]
  - ATRIOVENTRICULAR BLOCK [None]
  - BLOOD PRESSURE FLUCTUATION [None]
  - BRADYCARDIA [None]
